FAERS Safety Report 10161783 (Version 1)
Quarter: 2014Q2

REPORT INFORMATION
  Report Type: Spontaneous
  Country: IN (occurrence: None)
  Receive Date: 20140507
  Receipt Date: 20140507
  Transmission Date: 20141212
  Serious: Yes (Hospitalization, Other)
  Sender: FDA-Public Use
  Company Number: NSR_01546_2014

PATIENT
  Age: 32 Year
  Sex: Male

DRUGS (4)
  1. PROPRANOLOL [Suspect]
     Indication: PRODUCT USED FOR UNKNOWN INDICATION
     Route: 048
  2. DIGOXIN [Suspect]
     Indication: PRODUCT USED FOR UNKNOWN INDICATION
  3. INSULIN REGULAR (01223201) INSULIN [Suspect]
     Indication: PRODUCT USED FOR UNKNOWN INDICATION
     Route: 058
  4. INSULIN GLARGINE [Concomitant]

REACTIONS (7)
  - Overdose [None]
  - Nausea [None]
  - Vomiting [None]
  - Hypoglycaemia [None]
  - Hyperinsulinaemia [None]
  - Sinus bradycardia [None]
  - Toxicity to various agents [None]
